FAERS Safety Report 7027101-6 (Version None)
Quarter: 2010Q4

REPORT INFORMATION
  Report Type: 
  Country: None (occurrence: None)
  Receive Date: 20101004
  Receipt Date: 20100927
  Transmission Date: 20110411
  Serious: Yes (Other)
  Sender: FDA-Public Use
  Company Number: US-BAYER-201020797BCC

PATIENT
  Age: 19 Year
  Sex: Female
  Weight: 58 kg

DRUGS (3)
  1. ALEVE (CAPLET) [Suspect]
     Indication: DYSMENORRHOEA
     Dosage: TOTAL DAILY DOSE: 880 MG  UNIT DOSE: 220 MG
     Route: 048
  2. ALEVE (CAPLET) [Suspect]
     Dosage: TOTAL DAILY DOSE: 1540 MG  UNIT DOSE: 220 MG
     Route: 048
  3. NARCOTICS (ANALGESICS) [Concomitant]
     Route: 065

REACTIONS (2)
  - CONTUSION [None]
  - GASTROINTESTINAL ULCER [None]
